FAERS Safety Report 21148692 (Version 1)
Quarter: 2022Q3

REPORT INFORMATION
  Report Type: Spontaneous
  Country: US (occurrence: None)
  Receive Date: 20220728
  Receipt Date: 20220728
  Transmission Date: 20221027
  Serious: Yes (Disabling, Other)
  Sender: FDA-Public Use
  Company Number: None

PATIENT
  Age: 21 Year
  Sex: Female

DRUGS (2)
  1. LAMIVUDINE AND ZIDOVUDINE [Suspect]
     Active Substance: LAMIVUDINE\ZIDOVUDINE
  2. ZINC [Concomitant]
     Active Substance: ZINC

REACTIONS (3)
  - Insomnia [None]
  - Eye pain [None]
  - Product substitution issue [None]

NARRATIVE: CASE EVENT DATE: 20020501
